FAERS Safety Report 4364497-8 (Version None)
Quarter: 2004Q2

REPORT INFORMATION
  Report Type: 
  Country: None (occurrence: None)
  Receive Date: 20040519
  Receipt Date: 20040517
  Transmission Date: 20050107
  Serious: Yes (Death)
  Sender: FDA-Public Use
  Company Number: US-JNJFOC-20040404770

PATIENT
  Age: 29 Year
  Sex: Female
  Weight: 50.8029 kg

DRUGS (10)
  1. PANCREASE (PANCRELIPASE) UNSPECIFIED [Suspect]
     Indication: CYSTIC FIBROSIS
     Dates: start: 20011201, end: 20040325
  2. TOBRAMYCIN [Concomitant]
  3. PULMOZYME [Concomitant]
  4. PAXIL [Concomitant]
  5. INSULIN [Concomitant]
  6. NEXIUM [Concomitant]
  7. ADEK (ADEKS) [Concomitant]
  8. ALLEGRA [Concomitant]
  9. PRILOSEC [Concomitant]
  10. ACETAMINOPHEN WITH CODEINE (GALENIC / PARACETAMOL / CODEINE /) [Concomitant]

REACTIONS (1)
  - DEATH [None]
